FAERS Safety Report 15939695 (Version 1)
Quarter: 2019Q1

REPORT INFORMATION
  Report Type: Spontaneous
  Country: CN (occurrence: CN)
  Receive Date: 20190208
  Receipt Date: 20190208
  Transmission Date: 20190417
  Serious: Yes (Other)
  Sender: FDA-Public Use
  Company Number: CN-PFIZER INC-2019051148

PATIENT
  Age: 43 Year
  Sex: Male

DRUGS (2)
  1. LIPITOR [Suspect]
     Active Substance: ATORVASTATIN CALCIUM
     Indication: HYPERLIPIDAEMIA
     Dosage: 20 MG, 1X/DAY (7 TABLETS)
     Route: 048
     Dates: start: 20181009, end: 20190114
  2. MOXIFLOXACIN HYDROCHLORIDE. [Suspect]
     Active Substance: MOXIFLOXACIN HYDROCHLORIDE
     Dosage: 0.4 G, 1X/DAY
     Route: 041
     Dates: start: 20190112

REACTIONS (3)
  - Blood creatine phosphokinase increased [Recovering/Resolving]
  - Dehydration [Unknown]
  - Rhabdomyolysis [Unknown]

NARRATIVE: CASE EVENT DATE: 20190112
